FAERS Safety Report 15957971 (Version 1)
Quarter: 2019Q1

REPORT INFORMATION
  Report Type: Spontaneous
  Country: BR (occurrence: BR)
  Receive Date: 20190213
  Receipt Date: 20190213
  Transmission Date: 20190417
  Serious: Yes (Other)
  Sender: FDA-Public Use
  Company Number: BR-PFIZER INC-2019059837

PATIENT
  Age: 72 Year
  Sex: Female

DRUGS (7)
  1. XALATAN [Suspect]
     Active Substance: LATANOPROST
     Dosage: 2 GTT, DAILY (1 DROP IN EACH EYE AT NIGHT)
  2. DAFLON [BIOFLAVONOIDS;DIOSMIN;HESPERIDIN] [Concomitant]
     Dosage: UNK
  3. CAPTOPRIL. [Concomitant]
     Active Substance: CAPTOPRIL
     Indication: HYPERTENSION
     Dosage: UNK
  4. LOSARTAN. [Concomitant]
     Active Substance: LOSARTAN
     Indication: HYPERTENSION
     Dosage: UNK, 3X/DAY
  5. BEROTEC [Concomitant]
     Active Substance: FENOTEROL HYDROBROMIDE
     Dosage: UNK
  6. ATROPINE. [Concomitant]
     Active Substance: ATROPINE
     Dosage: UNK
  7. STER [Concomitant]
     Active Substance: PREDNISOLONE ACETATE
     Dosage: UNK

REACTIONS (3)
  - Dyspnoea [Unknown]
  - Eye pain [Unknown]
  - Blindness [Unknown]
